FAERS Safety Report 18923601 (Version 1)
Quarter: 2021Q1

REPORT INFORMATION
  Report Type: Spontaneous
  Country: DE (occurrence: DE)
  Receive Date: 20210222
  Receipt Date: 20210222
  Transmission Date: 20210420
  Serious: Yes (Other)
  Sender: FDA-Public Use
  Company Number: DE-HIKMA PHARMACEUTICALS USA INC.-DE-H14001-21-53626

PATIENT
  Sex: Female

DRUGS (1)
  1. CIPROFLOXACIN. [Suspect]
     Active Substance: CIPROFLOXACIN
     Indication: PSEUDOMONAS INFECTION
     Route: 065
     Dates: start: 201110

REACTIONS (22)
  - Headache [Unknown]
  - Nausea [Unknown]
  - Sleep disorder [Unknown]
  - Fatigue [Unknown]
  - Hearing disability [Unknown]
  - Trigeminal neuralgia [Unknown]
  - Bone pain [Unknown]
  - Depressed mood [Unknown]
  - Palpitations [Unknown]
  - Visual impairment [Unknown]
  - Disturbance in attention [Unknown]
  - Joint noise [Unknown]
  - Asthenia [Unknown]
  - Tinnitus [Unknown]
  - Cartilage atrophy [Unknown]
  - General physical health deterioration [Unknown]
  - Hypoaesthesia [Unknown]
  - Pain in extremity [Unknown]
  - Neuralgia [Unknown]
  - Heart rate increased [Unknown]
  - Vitreous haemorrhage [Unknown]
  - Feeling abnormal [Unknown]
